FAERS Safety Report 7248570-2 (Version None)
Quarter: 2011Q1

REPORT INFORMATION
  Report Type: 
  Country: None (occurrence: None)
  Receive Date: 20110128
  Receipt Date: 20101208
  Transmission Date: 20110831
  Serious: Yes (Other)
  Sender: FDA-Public Use
  Company Number: US-BAYER-2010-002969

PATIENT
  Age: 4 Year
  Sex: Female

DRUGS (1)
  1. CAMPHO-PHENIQUE COLD SORE TREATMENT FOR SCABRELIEF [Suspect]
     Indication: ECZEMA

REACTIONS (3)
  - VOMITING [None]
  - HALLUCINATION, VISUAL [None]
  - AGITATION [None]
